FAERS Safety Report 13271156 (Version 1)
Quarter: 2017Q1

REPORT INFORMATION
  Report Type: Spontaneous
  Country: US (occurrence: US)
  Receive Date: 20170226
  Receipt Date: 20170226
  Transmission Date: 20170428
  Serious: No
  Sender: FDA-Public Use
  Company Number: US-009507513-1702USA010983

PATIENT
  Sex: Male

DRUGS (1)
  1. BELSOMRA [Suspect]
     Active Substance: SUVOREXANT
     Indication: INSOMNIA
     Dosage: 60 MG (3 TABLETS OF 20 MG), DURING ONE NIGHT
     Route: 048

REACTIONS (2)
  - Overdose [Unknown]
  - Feeling abnormal [Unknown]
